FAERS Safety Report 5948549-4 (Version None)
Quarter: 2008Q4

REPORT INFORMATION
  Report Type: 
  Country: None (occurrence: None)
  Receive Date: 20081111
  Receipt Date: 20081105
  Transmission Date: 20090506
  Serious: Yes (Hospitalization)
  Sender: FDA-Public Use
  Company Number: US-WYE-H06729908

PATIENT
  Age: 63 Year
  Sex: Female
  Weight: 86.26 kg

DRUGS (7)
  1. ADVIL [Suspect]
     Indication: NECK PAIN
     Dosage: UNKNOWN
     Route: 048
  2. ADVIL [Suspect]
     Indication: PAIN IN EXTREMITY
  3. IBUPROFEN TABLETS [Suspect]
     Indication: NECK PAIN
     Dosage: UNKNOWN
     Route: 065
  4. IBUPROFEN TABLETS [Suspect]
     Indication: PAIN IN EXTREMITY
  5. MELATONIN [Concomitant]
     Indication: INSOMNIA
     Dosage: 1 TABLET PRN
     Route: 048
     Dates: start: 20070101
  6. METAMUCIL [Concomitant]
     Indication: BOWEL MOVEMENT IRREGULARITY
     Dosage: 1 TEASPOON EVERY DAY
     Route: 048
  7. LIPITOR [Concomitant]
     Indication: BLOOD CHOLESTEROL ABNORMAL
     Route: 048
     Dates: start: 20060101

REACTIONS (2)
  - DEHYDRATION [None]
  - VOMITING [None]
